FAERS Safety Report 10129826 (Version 1)
Quarter: 2014Q2

REPORT INFORMATION
  Report Type: Report from Study
  Country: BR (occurrence: BR)
  Receive Date: 20140428
  Receipt Date: 20140428
  Transmission Date: 20141212
  Serious: Yes (Hospitalization)
  Sender: FDA-Public Use
  Company Number: PHHY2014BR050099

PATIENT
  Sex: Female
  Weight: 53 kg

DRUGS (4)
  1. EXJADE [Suspect]
     Indication: SICKLE CELL ANAEMIA
     Dosage: 3 DF DAILY
     Route: 048
  2. HYDREA [Suspect]
     Dosage: 3 DF DAILY
  3. ACIFOL//FOLIC ACID [Suspect]
     Dosage: 1 DF DAILY
  4. DIPYRONE [Concomitant]
     Indication: PAIN
     Dosage: UNK UKN, PRN
     Route: 048

REACTIONS (2)
  - Malaise [Recovering/Resolving]
  - Pain [Recovering/Resolving]
